FAERS Safety Report 8437809-3 (Version None)
Quarter: 2012Q2

REPORT INFORMATION
  Report Type: 
  Country: None (occurrence: None)
  Receive Date: 20120614
  Receipt Date: 20120511
  Transmission Date: 20120825
  Serious: No
  Sender: FDA-Public Use
  Company Number: US-AMGEN-USASP2012030126

PATIENT
  Age: 89 Year
  Sex: Female

DRUGS (7)
  1. VITAMINS NOS [Concomitant]
  2. ATARAX [Concomitant]
  3. ATENOLOL [Concomitant]
  4. ATIVAN [Concomitant]
  5. PROLIA [Suspect]
     Indication: OSTEOPOROSIS POSTMENOPAUSAL
     Dosage: UNK UNK, Q6MO
     Dates: start: 20110926
  6. REMERON [Concomitant]
  7. FLUOCINOLONE ACETONIDE [Concomitant]

REACTIONS (5)
  - INSOMNIA [None]
  - URTICARIA [None]
  - ERYTHEMA [None]
  - SKIN BURNING SENSATION [None]
  - PRURITUS GENERALISED [None]
